FAERS Safety Report 5200379-7 (Version None)
Quarter: 2007Q1

REPORT INFORMATION
  Report Type: 
  Country: None (occurrence: None)
  Receive Date: 20070105
  Receipt Date: 20061229
  Transmission Date: 20070707
  Serious: Yes (Hospitalization, Other)
  Sender: FDA-Public Use
  Company Number: US-PFIZER INC-2007000232

PATIENT
  Sex: Female

DRUGS (3)
  1. LIPITOR [Suspect]
  2. FOSAMAX [Concomitant]
  3. LOTREL [Concomitant]

REACTIONS (2)
  - DEHYDRATION [None]
  - RENAL FAILURE [None]
